FAERS Safety Report 8464362-0 (Version None)
Quarter: 2012Q2

REPORT INFORMATION
  Report Type: 
  Country: None (occurrence: None)
  Receive Date: 20120626
  Receipt Date: 20120612
  Transmission Date: 20120825
  Serious: Yes (Other)
  Sender: FDA-Public Use
  Company Number: ES-AMGEN-ESPSP2012037818

PATIENT
  Age: 38 Year
  Sex: Female
  Weight: 70 kg

DRUGS (10)
  1. TRICYCLIC ANTIDEPRESSANTS [Concomitant]
     Dosage: UNK
  2. ANGIOTENSIN II ANTAGONISTS [Concomitant]
     Dosage: UNK
  3. ACE INHIBITORS [Concomitant]
     Dosage: UNK
  4. FOLIC ACID [Concomitant]
  5. ISONIAZID [Concomitant]
     Dosage: UNK UNK, UNK
  6. NSAID'S [Concomitant]
     Dosage: UNK
  7. SEROTONIN ANTAGONISTS [Concomitant]
     Dosage: UNK
  8. ACETAMINOPHEN [Concomitant]
     Dosage: UNK UNK, UNK
  9. PROTON PUMP INHIBITORS [Concomitant]
     Dosage: UNK
  10. ETANERCEPT [Suspect]
     Indication: PSORIASIS
     Dosage: 50 UNK, UNK
     Dates: start: 20040218, end: 20040710

REACTIONS (2)
  - AUTOIMMUNE HEPATITIS [None]
  - HEPATIC FUNCTION ABNORMAL [None]
